FAERS Safety Report 10662395 (Version 1)
Quarter: 2014Q4

REPORT INFORMATION
  Report Type: Spontaneous
  Country: US (occurrence: None)
  Receive Date: 20141217
  Receipt Date: 20141217
  Transmission Date: 20150529
  Serious: Yes (Disabling)
  Sender: FDA-Public Use
  Company Number: None

PATIENT
  Age: 62 Year
  Sex: Female
  Weight: 58.97 kg

DRUGS (1)
  1. PERIOGARD [Suspect]
     Active Substance: CHLORHEXIDINE GLUCONATE
     Indication: GINGIVAL DISORDER
     Dosage: DOSE OR AMOUNT: UNKNOWN, NO PHARMACY LABEL, FREQUENCY: UNKNOWN, ROUTE: ORAL RINSE
     Route: 048
     Dates: start: 20141212, end: 20141212

REACTIONS (8)
  - Pain [None]
  - Abdominal pain lower [None]
  - Product label issue [None]
  - Gastrointestinal pain [None]
  - Dysgeusia [None]
  - Abdominal tenderness [None]
  - Abdominal distension [None]
  - Pyrexia [None]

NARRATIVE: CASE EVENT DATE: 20141212
